FAERS Safety Report 14650722 (Version 1)
Quarter: 2018Q1

REPORT INFORMATION
  Report Type: Spontaneous
  Country: CA (occurrence: CA)
  Receive Date: 20180316
  Receipt Date: 20180316
  Transmission Date: 20180509
  Serious: Yes (Other)
  Sender: FDA-Public Use
  Company Number: CA-TEVA-2018-CA-868420

PATIENT
  Sex: Female

DRUGS (8)
  1. TRINTELLIX [Concomitant]
     Active Substance: VORTIOXETINE HYDROBROMIDE
     Dosage: 10 MILLIGRAM DAILY;
  2. PREDNISONE. [Suspect]
     Active Substance: PREDNISONE
     Indication: PRODUCT USED FOR UNKNOWN INDICATION
     Dosage: DECREASING DOSES STARTING ON 08JAN2018 X 24 DAYS AND STARTING ANOTHER CALENDAR IN DECREASING DOSES
     Route: 065
     Dates: start: 20180108
  3. WELLBUTRIN [Concomitant]
     Active Substance: BUPROPION HYDROCHLORIDE
     Dosage: 150 MILLIGRAM DAILY;
  4. VALTREX [Concomitant]
     Active Substance: VALACYCLOVIR HYDROCHLORIDE
     Dosage: 500 MILLIGRAM DAILY;
  5. ZOPICLONE [Concomitant]
     Active Substance: ZOPICLONE
     Dosage: 3.75 MILLIGRAM DAILY; 3,75MG HS (AT BEDTIME)
  6. METAMUCIL [Concomitant]
     Active Substance: PLANTAGO SEED
     Dosage: HS (AT BEDTIME)
  7. MEZAVANT [Concomitant]
     Active Substance: MESALAMINE
     Dates: start: 201705, end: 20180222
  8. TRAMACET [Concomitant]
     Active Substance: ACETAMINOPHEN\TRAMADOL
     Indication: PAIN
     Dosage: PRN (AS NEEDED)

REACTIONS (1)
  - Rectal haemorrhage [Unknown]
